FAERS Safety Report 10289948 (Version 1)
Quarter: 2014Q3

REPORT INFORMATION
  Report Type: Spontaneous
  Country: PE (occurrence: PE)
  Receive Date: 20140710
  Receipt Date: 20140710
  Transmission Date: 20150326
  Serious: Yes (Hospitalization)
  Sender: FDA-Public Use
  Company Number: PE-NOVOPROD-415218

PATIENT
  Age: 4 Month
  Sex: Male
  Weight: 1.64 kg

DRUGS (2)
  1. SUPRADYN                           /01742801/ [Concomitant]
     Dosage: QD
     Route: 064
     Dates: start: 201309
  2. LEVEMIR [Suspect]
     Active Substance: INSULIN DETEMIR
     Indication: TYPE 2 DIABETES MELLITUS
     Dosage: 6 IU, QD
     Route: 064
     Dates: start: 20131205, end: 20140228

REACTIONS (4)
  - Low birth weight baby [Not Recovered/Not Resolved]
  - Cardiac murmur [Unknown]
  - Premature baby [Recovered/Resolved]
  - Foetal exposure during pregnancy [Recovered/Resolved]

NARRATIVE: CASE EVENT DATE: 20131205
